FAERS Safety Report 13825159 (Version 2)
Quarter: 2017Q3

REPORT INFORMATION
  Report Type: Spontaneous
  Country: NO (occurrence: NO)
  Receive Date: 20170802
  Receipt Date: 20170803
  Transmission Date: 20171127
  Serious: Yes (Other)
  Sender: FDA-Public Use
  Company Number: PHHY2017NO110668

PATIENT
  Sex: Female

DRUGS (2)
  1. VOLTAREN [Suspect]
     Active Substance: DICLOFENAC SODIUM
     Indication: TENDONITIS
     Dosage: UNK
     Route: 065
     Dates: start: 201702
  2. PROLIA [Suspect]
     Active Substance: DENOSUMAB
     Indication: OSTEOPOROSIS
     Dosage: 60 MG, 6QD
     Route: 058
     Dates: start: 2013, end: 201705

REACTIONS (7)
  - Bone density abnormal [Not Recovered/Not Resolved]
  - Sensitivity of teeth [Unknown]
  - Myalgia [Recovered/Resolved]
  - Tendonitis [Unknown]
  - Toothache [Unknown]
  - Arthralgia [Recovered/Resolved]
  - Paraesthesia [Unknown]

NARRATIVE: CASE EVENT DATE: 2016
